FAERS Safety Report 19276462 (Version 2)
Quarter: 2021Q4

REPORT INFORMATION
  Report Type: Report from Study
  Country: US (occurrence: None)
  Receive Date: 20210519
  Receipt Date: 20211101
  Transmission Date: 20220303
  Serious: Yes (Hospitalization)
  Sender: FDA-Public Use
  Company Number: US-EISAI MEDICAL RESEARCH-EC-2021-092787

PATIENT
  Age: 17 Year
  Sex: Male
  Weight: 54.6 kg

DRUGS (35)
  1. LENVATINIB [Suspect]
     Active Substance: LENVATINIB
     Indication: Alveolar rhabdomyosarcoma
     Route: 048
     Dates: start: 20210224, end: 20210308
  2. LENVATINIB [Suspect]
     Active Substance: LENVATINIB
     Route: 048
     Dates: start: 20210309, end: 20210513
  3. EVEROLIMUS [Suspect]
     Active Substance: EVEROLIMUS
     Indication: Alveolar rhabdomyosarcoma
     Route: 048
     Dates: start: 20210224, end: 20210513
  4. ACETAMINOPHEN [Concomitant]
     Active Substance: ACETAMINOPHEN
     Indication: Pain
     Route: 048
     Dates: start: 20201113
  5. DOCUSATE [Concomitant]
     Active Substance: DOCUSATE
     Indication: Constipation
     Route: 048
     Dates: start: 20210209
  6. LORAZEPAM [Concomitant]
     Active Substance: LORAZEPAM
     Indication: Nausea
     Route: 048
     Dates: start: 20201113
  7. LORAZEPAM [Concomitant]
     Active Substance: LORAZEPAM
     Indication: Vomiting
  8. OLANZAPINE [Concomitant]
     Active Substance: OLANZAPINE
     Indication: Nausea
     Route: 048
     Dates: start: 20201208
  9. OLANZAPINE [Concomitant]
     Active Substance: OLANZAPINE
     Indication: Vomiting
  10. OMEPRAZOLE [Concomitant]
     Active Substance: OMEPRAZOLE
     Indication: Gastrooesophageal reflux disease
     Route: 048
     Dates: start: 20201229
  11. ONDANSETRON [Concomitant]
     Active Substance: ONDANSETRON
     Indication: Nausea
     Route: 048
     Dates: start: 20201113
  12. ONDANSETRON [Concomitant]
     Active Substance: ONDANSETRON
     Indication: Vomiting
  13. MIRALAX [Concomitant]
     Active Substance: POLYETHYLENE GLYCOL 3350
     Indication: Constipation
     Route: 048
     Dates: start: 20201113
  14. POVIDONE IODINE (BETADINE) [Concomitant]
     Indication: Therapy change
     Route: 061
     Dates: start: 20200306
  15. SCOPOLAMINE [Concomitant]
     Active Substance: SCOPOLAMINE
     Indication: Nausea
     Route: 061
     Dates: start: 20201208
  16. SCOPOLAMINE [Concomitant]
     Active Substance: SCOPOLAMINE
     Indication: Vomiting
  17. SENNA [Concomitant]
     Active Substance: SENNA LEAF\SENNOSIDES\SENNOSIDES A AND B
     Indication: Constipation
     Route: 048
     Dates: start: 20210209
  18. SULFAMETHAXOZOLE-TRIMETHOPRIM [Concomitant]
     Indication: Infection prophylaxis
     Dosage: MONDAY, WEDNESDAY, FRIDAY
     Route: 048
     Dates: start: 20210126
  19. OXYCODONE [Concomitant]
     Active Substance: OXYCODONE
     Indication: Pain
     Route: 048
     Dates: start: 20210302
  20. CHOLECALCIFEROL [Concomitant]
     Active Substance: CHOLECALCIFEROL
     Indication: Prophylaxis
     Dosage: EVERY WEDNESDAY
     Route: 048
     Dates: start: 20210324
  21. CALCIUM CARBONATE [Concomitant]
     Active Substance: CALCIUM CARBONATE
     Indication: Gastrointestinal pain
     Route: 048
     Dates: start: 20210401
  22. LEVOTHYROXINE [Concomitant]
     Active Substance: LEVOTHYROXINE
     Indication: Hypothyroidism
     Route: 048
     Dates: start: 20210423
  23. LACTULOSE [Concomitant]
     Active Substance: LACTULOSE
     Indication: Constipation
     Route: 048
     Dates: start: 20210427
  24. VINCRISTINE [Concomitant]
     Active Substance: VINCRISTINE
     Indication: Alveolar rhabdomyosarcoma
     Dosage: DAY 1
     Route: 042
     Dates: start: 20210518
  25. VINCRISTINE [Concomitant]
     Active Substance: VINCRISTINE
     Route: 048
     Dates: start: 20210513, end: 20210529
  26. VINCRISTINE [Concomitant]
     Active Substance: VINCRISTINE
     Dosage: DAY 1-5
     Route: 048
     Dates: start: 20210518
  27. VINCRISTINE [Concomitant]
     Active Substance: VINCRISTINE
     Dosage: DAY 1
     Route: 042
     Dates: start: 20210518
  28. TEMOZOLOMIDE [Concomitant]
     Active Substance: TEMOZOLOMIDE
     Indication: Alveolar rhabdomyosarcoma
     Dosage: DAY 1*5
     Route: 048
     Dates: start: 20210518
  29. TEMOZOLOMIDE [Concomitant]
     Active Substance: TEMOZOLOMIDE
     Route: 048
     Dates: start: 20210513, end: 20210529
  30. TEMOZOLOMIDE [Concomitant]
     Active Substance: TEMOZOLOMIDE
     Dosage: DAY 1-5
     Route: 048
     Dates: start: 20210518
  31. TEMOZOLOMIDE [Concomitant]
     Active Substance: TEMOZOLOMIDE
     Dosage: DAY 1
     Route: 042
     Dates: start: 20210518
  32. IRINOTECAN [Concomitant]
     Active Substance: IRINOTECAN
     Indication: Alveolar rhabdomyosarcoma
     Dosage: DAY 1-5
     Route: 042
     Dates: start: 20210518
  33. IRINOTECAN [Concomitant]
     Active Substance: IRINOTECAN
     Route: 048
     Dates: start: 20210513, end: 20210529
  34. IRINOTECAN [Concomitant]
     Active Substance: IRINOTECAN
     Dosage: DAY 1-5
     Route: 048
     Dates: start: 20210518
  35. IRINOTECAN [Concomitant]
     Active Substance: IRINOTECAN
     Dosage: DAY 1
     Route: 042
     Dates: start: 20210518

REACTIONS (2)
  - Pneumothorax [Recovering/Resolving]
  - Diarrhoea [Recovered/Resolved]

NARRATIVE: CASE EVENT DATE: 20210512
